FAERS Safety Report 5621106-5 (Version None)
Quarter: 2008Q1

REPORT INFORMATION
  Report Type: 
  Country: None (occurrence: None)
  Receive Date: 20080114
  Receipt Date: 20070118
  Transmission Date: 20080703
  Serious: Yes (Hospitalization)
  Sender: FDA-Public Use
  Company Number: A03200700573

PATIENT
  Age: 57 Year
  Sex: Female
  Weight: 99.77 kg

DRUGS (16)
  1. PLAVIX [Suspect]
     Indication: CORONARY ARTERIAL STENT INSERTION
     Dosage: 75 MG QD - ORAL
     Route: 048
     Dates: start: 20060501
  2. ISOSORBIDE MONONITRATE [Concomitant]
  3. FUROSEMIDE [Concomitant]
  4. DOXERCALCIFEROL [Concomitant]
  5. CLONIDINE HCL [Concomitant]
  6. LISINOPRIL [Concomitant]
  7. HYDRALAZINE HCL [Concomitant]
  8. METOPROLOL TARTRATE [Concomitant]
  9. ACETYLSALICYLIC ACID SRT [Concomitant]
  10. OMEPRAZOLE [Concomitant]
  11. INSULIN ASPART [Concomitant]
  12. INSULIN GLARGINE [Concomitant]
  13. HYDROMORPHONE HYDROCHLORIDE [Concomitant]
  14. FERROUS SULFATE [Concomitant]
  15. ALPRAZOLAM [Concomitant]
  16. VITAMIN D [Concomitant]

REACTIONS (8)
  - ANGINA PECTORIS [None]
  - BLOOD CREATININE INCREASED [None]
  - BLOOD GLUCOSE INCREASED [None]
  - BLOOD PHOSPHORUS INCREASED [None]
  - FATIGUE [None]
  - INSOMNIA [None]
  - MUSCULAR WEAKNESS [None]
  - PNEUMONIA [None]
